FAERS Safety Report 5350781-8 (Version None)
Quarter: 2007Q2

REPORT INFORMATION
  Report Type: 
  Country: None (occurrence: None)
  Receive Date: 20070608
  Receipt Date: 20070530
  Transmission Date: 20071010
  Serious: Yes (Hospitalization)
  Sender: FDA-Public Use
  Company Number: JP-ROCHE-492373

PATIENT
  Age: 13 Year
  Sex: Male
  Weight: 58 kg

DRUGS (1)
  1. TAMIFLU [Suspect]
     Indication: INFLUENZA
     Route: 048
     Dates: start: 20070302, end: 20070302

REACTIONS (5)
  - ABNORMAL BEHAVIOUR [None]
  - INTENTIONAL SELF-INJURY [None]
  - LIP HAEMORRHAGE [None]
  - SKIN LACERATION [None]
  - SUICIDAL IDEATION [None]
